FAERS Safety Report 24220533 (Version 2)
Quarter: 2024Q3

REPORT INFORMATION
  Report Type: Report from Study
  Country: IT (occurrence: IT)
  Receive Date: 20240818
  Receipt Date: 20240927
  Transmission Date: 20241016
  Serious: Yes (Other)
  Sender: TEVA
  Company Number: None

PATIENT
  Age: 51 Year
  Sex: Female
  Weight: 68 kg

DRUGS (2)
  1. GEMCITABINE [Suspect]
     Active Substance: GEMCITABINE
     Indication: Product used for unknown indication
     Dosage: THE PATIENT WAS ADMINISTERED GEMCITABINE AT A REDUCED DOSAGE, THEREFORE 600MG COMPARED TO 1200MG.
     Route: 065
     Dates: start: 20240604, end: 20240807
  2. ABRAXANE [Suspect]
     Active Substance: PACLITAXEL
     Indication: Product used for unknown indication
     Dosage: THE PATIENT WAS GIVEN ABRAXANE AT A REDUCED DOSE OF 30%, SO 120MG VERSUS THE FULL DOSE OF 150MG.
     Route: 042
     Dates: start: 20240104, end: 20240807

REACTIONS (1)
  - Thrombocytopenia [Recovered/Resolved]

NARRATIVE: CASE EVENT DATE: 20240104
